FAERS Safety Report 8588445-X (Version None)
Quarter: 2012Q3

REPORT INFORMATION
  Report Type: 
  Country: None (occurrence: None)
  Receive Date: 20120813
  Receipt Date: 20120801
  Transmission Date: 20120928
  Serious: Yes (Hospitalization)
  Sender: FDA-Public Use
  Company Number: US-BAYER-2012-078966

PATIENT
  Age: 30 Year
  Sex: Female

DRUGS (6)
  1. YASMIN [Suspect]
  2. ANCEF [Concomitant]
     Indication: CELLULITIS
  3. DURICEF [Concomitant]
     Dosage: 1 G, BID 2WEEKS
     Route: 048
  4. YAZ [Suspect]
     Dosage: UNK
     Dates: start: 20040101, end: 20040813
  5. FUROSEMIDE [Concomitant]
     Dosage: 20 MG, DAILY
     Route: 048
  6. MYCOLOG-II [Concomitant]
     Indication: PRURITUS
     Dosage: UNK UNK, BID PRN

REACTIONS (1)
  - DEEP VEIN THROMBOSIS [None]
